FAERS Safety Report 22361630 (Version 1)
Quarter: 2023Q2

REPORT INFORMATION
  Report Type: Spontaneous
  Country: US (occurrence: None)
  Receive Date: 20230524
  Receipt Date: 20230524
  Transmission Date: 20230722
  Serious: No
  Sender: FDA-Public Use
  Company Number: None

PATIENT

DRUGS (1)
  1. SODIUM CHLORIDE [Suspect]
     Active Substance: SODIUM CHLORIDE

REACTIONS (4)
  - Product supply issue [None]
  - Device delivery system issue [None]
  - Product label issue [None]
  - Product packaging quantity issue [None]

NARRATIVE: CASE EVENT DATE: 20230404
